FAERS Safety Report 4455547-9 (Version None)
Quarter: 2004Q3

REPORT INFORMATION
  Report Type: 
  Country: None (occurrence: None)
  Receive Date: 20040917
  Receipt Date: 20040901
  Transmission Date: 20050211
  Serious: Yes (Other)
  Sender: FDA-Public Use
  Company Number: JP_040804333

PATIENT
  Age: 78 Year
  Sex: Male

DRUGS (1)
  1. GEMZAR [Suspect]
     Indication: LUNG NEOPLASM MALIGNANT
     Dosage: 1000 MG OTHER
     Dates: start: 20040817, end: 20040817

REACTIONS (4)
  - ASTHENIA [None]
  - DROOLING [None]
  - ERECTILE DYSFUNCTION [None]
  - FATIGUE [None]
